FAERS Safety Report 8578157 (Version 2)
Quarter: 2012Q4

REPORT INFORMATION
  Report Type: 
  Country: BR (occurrence: BR)
  Receive Date: 20120524
  Receipt Date: 20121105
  Transmission Date: 20130627
  Serious: Yes (Hospitalization)
  Sender: FDA-Public Use
  Company Number: BR-ASTRAZENECA-2012SE31757

PATIENT
  Age: 91 Year
  Sex: Female
  Weight: 63 kg

DRUGS (2)
  1. ATACAND [Suspect]
     Indication: HYPERTENSION
     Route: 048
     Dates: start: 2010, end: 201203
  2. ATACAND [Suspect]
     Indication: HYPERTENSION
     Dosage: GENERIC, ONCE DAILY
     Route: 048
     Dates: start: 201203

REACTIONS (2)
  - Ulcer [Recovered/Resolved]
  - Osteoarthritis [Not Recovered/Not Resolved]
